FAERS Safety Report 6936115-3 (Version None)
Quarter: 2010Q3

REPORT INFORMATION
  Report Type: 
  Country: None (occurrence: None)
  Receive Date: 20100823
  Receipt Date: 20100819
  Transmission Date: 20110219
  Serious: Yes (Hospitalization)
  Sender: FDA-Public Use
  Company Number: JP-SANOFI-AVENTIS-2010SA047019

PATIENT
  Age: 64 Year
  Sex: Male
  Weight: 73.2 kg

DRUGS (9)
  1. CLOPIDOGREL BISULFATE [Suspect]
     Route: 048
     Dates: start: 20091017, end: 20091017
  2. CLOPIDOGREL BISULFATE [Suspect]
     Route: 048
     Dates: start: 20091018, end: 20100107
  3. PLAVIX [Suspect]
     Route: 048
     Dates: start: 20100108, end: 20100206
  4. PLAVIX [Suspect]
     Route: 048
     Dates: start: 20100228
  5. ASPIRIN [Suspect]
     Dosage: DOSAGE UNKNOWN
     Route: 048
     Dates: start: 20091017, end: 20100216
  6. IMIDAPRIL HYDROCHLORIDE [Concomitant]
     Indication: HYPERTENSION
     Route: 048
  7. ADONA [Concomitant]
     Indication: HAEMOSTASIS
     Route: 048
     Dates: end: 20091207
  8. ADONA [Concomitant]
     Route: 048
     Dates: start: 20091208
  9. ITAVASTATIN [Concomitant]
     Indication: PRODUCT USED FOR UNKNOWN INDICATION
     Dosage: DIVIDED DOSE FREQUENCY UNKNOWN
     Route: 048
     Dates: start: 20091112

REACTIONS (2)
  - GASTRIC CANCER STAGE IV [None]
  - GASTRIC HAEMORRHAGE [None]
